FAERS Safety Report 5455981-4 (Version None)
Quarter: 2007Q3

REPORT INFORMATION
  Report Type: 
  Country: None (occurrence: None)
  Receive Date: 20070918
  Receipt Date: 20070330
  Transmission Date: 20080115
  Serious: Yes (Other)
  Sender: FDA-Public Use
  Company Number: US-ASTRAZENECA-2006UW23907

PATIENT
  Age: 15857 Day
  Sex: Male
  Weight: 77.3 kg

DRUGS (4)
  1. SEROQUEL [Suspect]
     Route: 048
  2. RISPERDAL [Concomitant]
     Dates: start: 20000101
  3. ZYPREXA [Concomitant]
     Dates: start: 20000101
  4. MARIJUANA [Concomitant]

REACTIONS (2)
  - PANCREATITIS [None]
  - TYPE 2 DIABETES MELLITUS [None]
